FAERS Safety Report 9518154 (Version 1)
Quarter: 2013Q1

REPORT INFORMATION
  Report Type: Spontaneous
  Country: US (occurrence: None)
  Receive Date: 20130305
  Receipt Date: 20130305
  Transmission Date: 20140127
  Serious: Yes (Other)
  Sender: FDA-Public Use
  Company Number: 163-21880-12121200

PATIENT
  Age: 58 Year
  Sex: Male

DRUGS (2)
  1. REVLIMID [Suspect]
     Indication: PLASMA CELL MYELOMA
     Dosage: 10 MG, 1 IN 1 D, PO
     Route: 048
     Dates: start: 20100324
  2. VELCADE [Concomitant]

REACTIONS (12)
  - Hypertension [None]
  - Abdominal pain upper [None]
  - Asthenia [None]
  - Hypotension [None]
  - Fatigue [None]
  - Dizziness [None]
  - Fall [None]
  - Neuropathy peripheral [None]
  - Decreased appetite [None]
  - Insomnia [None]
  - Diarrhoea [None]
  - Weight decreased [None]
